FAERS Safety Report 20722030 (Version 2)
Quarter: 2022Q3

REPORT INFORMATION
  Report Type: Spontaneous
  Country: US (occurrence: US)
  Receive Date: 20220418
  Receipt Date: 20220711
  Transmission Date: 20221027
  Serious: No
  Sender: FDA-Public Use
  Company Number: US-PFIZER INC-202200575347

PATIENT
  Age: 66 Year
  Sex: Female

DRUGS (4)
  1. XELJANZ XR [Suspect]
     Active Substance: TOFACITINIB CITRATE
     Indication: Rheumatoid arthritis
     Dosage: 11 MG, DAILY
     Route: 048
     Dates: start: 2019, end: 202203
  2. XELJANZ XR [Suspect]
     Active Substance: TOFACITINIB CITRATE
     Dosage: 11 MG, 1X/DAY
     Route: 048
     Dates: start: 202004, end: 202203
  3. LOSARTAN [Concomitant]
     Active Substance: LOSARTAN
     Dosage: UNK
  4. LEVOTHYROXINE [Concomitant]
     Active Substance: LEVOTHYROXINE
     Dosage: UNK

REACTIONS (3)
  - Hypertension [Recovered/Resolved]
  - Helicobacter infection [Not Recovered/Not Resolved]
  - Gastric neoplasm [Not Recovered/Not Resolved]

NARRATIVE: CASE EVENT DATE: 20210101
